FAERS Safety Report 20150305 (Version 3)
Quarter: 2025Q1

REPORT INFORMATION
  Report Type: Report from Study
  Country: US (occurrence: US)
  Receive Date: 20211206
  Receipt Date: 20250218
  Transmission Date: 20250409
  Serious: Yes (Other)
  Sender: BAUSCH AND LOMB
  Company Number: US-BAUSCH-BL-2018-026643

PATIENT
  Age: 61 Year
  Sex: Male
  Weight: 83.99 kg

DRUGS (19)
  1. SILIQ [Suspect]
     Active Substance: BRODALUMAB
     Indication: Psoriasis
     Dosage: 0, 1, AND 2 FOLLOWED BY 210 MG EVERY 2 WEEKS ABOUT ONE YEAR AGO 19/SEP/2018 MISSED HIS LAST SILIQ
     Route: 058
     Dates: start: 2018, end: 201809
  2. SILIQ [Suspect]
     Active Substance: BRODALUMAB
     Indication: Psoriatic arthropathy
     Dosage: ON HIS EVERY 2-WEEK MAINTENANCE DOSING OF SILIQ
     Route: 058
     Dates: start: 2018, end: 20200304
  3. SILIQ [Suspect]
     Active Substance: BRODALUMAB
     Dosage: RECENTLY STARTED MAINTAINENCE DOSE
     Route: 058
     Dates: start: 2020, end: 2020
  4. SILIQ [Suspect]
     Active Substance: BRODALUMAB
     Route: 058
     Dates: start: 2020, end: 202012
  5. SILIQ [Suspect]
     Active Substance: BRODALUMAB
     Dosage: EVERY 2 WEEKS
     Route: 058
     Dates: start: 202012, end: 20250210
  6. DUTASTERIDE [Concomitant]
     Active Substance: DUTASTERIDE
     Indication: Product used for unknown indication
     Route: 048
  7. SULFASALAZINE [Concomitant]
     Active Substance: SULFASALAZINE
     Indication: Product used for unknown indication
     Route: 048
  8. CELEBREX [Concomitant]
     Active Substance: CELECOXIB
     Indication: Product used for unknown indication
     Route: 048
  9. METHOTREXATE [Concomitant]
     Active Substance: METHOTREXATE
     Indication: Psoriatic arthropathy
     Route: 048
  10. FOLIC ACID [Concomitant]
     Active Substance: FOLIC ACID
     Indication: Product used for unknown indication
     Route: 048
  11. PRILOSEC [Concomitant]
     Active Substance: OMEPRAZOLE MAGNESIUM
     Indication: Product used for unknown indication
     Route: 048
  12. PEPCID [Concomitant]
     Active Substance: FAMOTIDINE
     Indication: Product used for unknown indication
     Route: 048
  13. HYDROCORTISONE [Concomitant]
     Active Substance: HYDROCORTISONE
     Indication: Product used for unknown indication
     Route: 061
  14. VENLAFAXINE [Concomitant]
     Active Substance: VENLAFAXINE HYDROCHLORIDE
     Indication: Product used for unknown indication
     Route: 048
  15. TRAZODONE [Concomitant]
     Active Substance: TRAZODONE HYDROCHLORIDE
     Indication: Product used for unknown indication
     Route: 048
  16. BUSPAR [Concomitant]
     Active Substance: BUSPIRONE HYDROCHLORIDE
     Indication: Product used for unknown indication
     Route: 048
  17. GABAPENTIN [Concomitant]
     Active Substance: GABAPENTIN
     Indication: Product used for unknown indication
     Route: 048
  18. DICLOFENAC SODIUM [Concomitant]
     Active Substance: DICLOFENAC SODIUM
     Indication: Product used for unknown indication
     Route: 061
  19. VITAMINS NOS [Concomitant]
     Active Substance: VITAMINS
     Indication: Product used for unknown indication
     Route: 048

REACTIONS (19)
  - Pancreatitis [Not Recovered/Not Resolved]
  - Cough [Recovered/Resolved]
  - Brain fog [Recovered/Resolved]
  - Pyrexia [Recovered/Resolved]
  - Abdominal pain lower [Unknown]
  - Ill-defined disorder [Not Recovered/Not Resolved]
  - Pain [Unknown]
  - Thirst [Not Recovered/Not Resolved]
  - Dry mouth [Not Recovered/Not Resolved]
  - Eye discharge [Recovered/Resolved]
  - Psoriasis [Recovered/Resolved]
  - Disease recurrence [Recovered/Resolved]
  - COVID-19 [Recovered/Resolved]
  - Nasopharyngitis [Unknown]
  - Therapy cessation [Unknown]
  - Therapy interrupted [Unknown]
  - Insurance issue [Unknown]
  - Product availability issue [Unknown]
  - Inappropriate schedule of product administration [Unknown]

NARRATIVE: CASE EVENT DATE: 20180101
